FAERS Safety Report 11113218 (Version 1)
Quarter: 2015Q2

REPORT INFORMATION
  Report Type: Spontaneous
  Country: US (occurrence: US)
  Receive Date: 20150514
  Receipt Date: 20150514
  Transmission Date: 20150821
  Serious: No
  Sender: FDA-Public Use
  Company Number: US-ELI_LILLY_AND_COMPANY-US201505000251

PATIENT
  Sex: Female

DRUGS (3)
  1. KLONOPIN [Concomitant]
     Active Substance: CLONAZEPAM
  2. SYNTHROID [Concomitant]
     Active Substance: LEVOTHYROXINE SODIUM
  3. FORTEO [Suspect]
     Active Substance: TERIPARATIDE
     Indication: BONE LOSS
     Dosage: 20 UG, QD
     Route: 065
     Dates: start: 201411

REACTIONS (9)
  - Dysgeusia [Not Recovered/Not Resolved]
  - Confusional state [Not Recovered/Not Resolved]
  - Depression [Not Recovered/Not Resolved]
  - Dry mouth [Not Recovered/Not Resolved]
  - Constipation [Not Recovered/Not Resolved]
  - Off label use [Unknown]
  - Anxiety [Not Recovered/Not Resolved]
  - Dysphonia [Not Recovered/Not Resolved]
  - Tinnitus [Not Recovered/Not Resolved]
